FAERS Safety Report 14212044 (Version 1)
Quarter: 2017Q4

REPORT INFORMATION
  Report Type: Spontaneous
  Country: US (occurrence: None)
  Receive Date: 20171121
  Receipt Date: 20171121
  Transmission Date: 20180321
  Serious: No
  Sender: FDA-Public Use
  Company Number: None

PATIENT
  Sex: Female

DRUGS (1)
  1. CAPECITABINE. [Suspect]
     Active Substance: CAPECITABINE
     Indication: BREAST CANCER FEMALE
     Dosage: 1000MG TWICE DAILY FOR TWO WEEKS ON AND TWO WEEKS OFF BY MOUTH
     Route: 048
     Dates: start: 20170718, end: 20171117

REACTIONS (1)
  - Skin exfoliation [None]
